FAERS Safety Report 25546542 (Version 1)
Quarter: 2025Q3

REPORT INFORMATION
  Report Type: Spontaneous
  Country: GB (occurrence: GB)
  Receive Date: 20250713
  Receipt Date: 20250713
  Transmission Date: 20251020
  Serious: Yes (Life-Threatening, Other)
  Sender: JOHNSON AND JOHNSON
  Company Number: None

PATIENT
  Age: 63 Year
  Sex: Female
  Weight: 90 kg

DRUGS (2)
  1. INVOKANA [Suspect]
     Active Substance: CANAGLIFLOZIN
     Indication: Diabetes mellitus
     Route: 048
     Dates: start: 20250610
  2. LEVOTHYROXINE [Concomitant]
     Active Substance: LEVOTHYROXINE
     Indication: Hypothyroidism
     Dates: start: 200708

REACTIONS (5)
  - Urge incontinence [Not Recovered/Not Resolved]
  - Dehydration [Not Recovered/Not Resolved]
  - Blood ketone body [Recovering/Resolving]
  - Palpitations [Not Recovered/Not Resolved]
  - Medication error [Unknown]

NARRATIVE: CASE EVENT DATE: 20250620
